APPROVED DRUG PRODUCT: LIDOCAINE HYDROCHLORIDE
Active Ingredient: LIDOCAINE HYDROCHLORIDE
Strength: 2%
Dosage Form/Route: INJECTABLE;INJECTION
Application: A040078 | Product #001 | TE Code: AP
Applicant: HOSPIRA INC
Approved: Jun 23, 1995 | RLD: No | RS: No | Type: RX